FAERS Safety Report 11196401 (Version 1)
Quarter: 2015Q2

REPORT INFORMATION
  Report Type: Spontaneous
  Country: FR (occurrence: FR)
  Receive Date: 20150617
  Receipt Date: 20150617
  Transmission Date: 20150821
  Serious: Yes (Hospitalization)
  Sender: FDA-Public Use
  Company Number: FR-SA-2015SA082794

PATIENT
  Age: 59 Year
  Sex: Female

DRUGS (10)
  1. AMAREL [Suspect]
     Active Substance: GLIMEPIRIDE
     Route: 048
     Dates: end: 20150504
  2. ISONIAZIDE [Suspect]
     Active Substance: ISONIAZID
     Indication: TUBERCULOSIS
     Route: 048
     Dates: start: 20150424, end: 20150504
  3. RIFAMPICINE [Suspect]
     Active Substance: RIFAMPIN
     Indication: TUBERCULOSIS
     Route: 048
     Dates: start: 20150424, end: 20150504
  4. CRESTOR [Suspect]
     Active Substance: ROSUVASTATIN CALCIUM
     Route: 048
     Dates: end: 20150504
  5. MYAMBUTOL [Suspect]
     Active Substance: ETHAMBUTOL HYDROCHLORIDE
     Indication: TUBERCULOSIS
     Route: 048
     Dates: start: 20150424, end: 20150504
  6. URBANYL [Concomitant]
     Active Substance: CLOBAZAM
     Route: 048
  7. ZONEGRAN [Concomitant]
     Active Substance: ZONISAMIDE
     Route: 048
  8. LAMOTRIGINE. [Concomitant]
     Active Substance: LAMOTRIGINE
  9. PYRAZINAMIDE. [Suspect]
     Active Substance: PYRAZINAMIDE
     Indication: TUBERCULOSIS
     Route: 048
     Dates: start: 20150424, end: 20150504
  10. VIMPAT [Concomitant]
     Active Substance: LACOSAMIDE
     Route: 048

REACTIONS (2)
  - Hepatic enzyme increased [Recovering/Resolving]
  - Cholelithiasis [Recovering/Resolving]

NARRATIVE: CASE EVENT DATE: 20150502
